FAERS Safety Report 7671092-1 (Version None)
Quarter: 2011Q3

REPORT INFORMATION
  Report Type: 
  Country: None (occurrence: None)
  Receive Date: 20110803
  Receipt Date: 20110720
  Transmission Date: 20111222
  Serious: Yes (Hospitalization, Congenital Anomaly, Other)
  Sender: FDA-Public Use
  Company Number: 1000021901

PATIENT
  Sex: Male
  Weight: 2.48 kg

DRUGS (3)
  1. ESCITALOPRAM OXALATE [Suspect]
     Dosage: 40 MG (40 MG, 1 IN 1 D) , TRANSPLACENTAL
     Route: 064
     Dates: end: 20100131
  2. METHYLDOPA [Suspect]
     Route: 064
  3. FOLIC ACID [Concomitant]

REACTIONS (18)
  - NEONATAL RESPIRATORY DEPRESSION [None]
  - HYPOTONIA NEONATAL [None]
  - CARDIAC MURMUR [None]
  - CAESAREAN SECTION [None]
  - OVERDOSE [None]
  - SEROTONIN SYNDROME [None]
  - SMALL FOR DATES BABY [None]
  - CONGENITAL CHOROID PLEXUS CYST [None]
  - PREMATURE BABY [None]
  - NEONATAL HYPOTENSION [None]
  - NEONATAL COMPLICATIONS OF SUBSTANCE ABUSE [None]
  - MATERNAL DRUGS AFFECTING FOETUS [None]
  - PELVIC KIDNEY [None]
  - FOETAL DISTRESS SYNDROME [None]
  - FOETAL HEART RATE DECELERATION [None]
  - FOETAL ACIDOSIS [None]
  - BRADYCARDIA NEONATAL [None]
  - NEONATAL TACHYCARDIA [None]
